FAERS Safety Report 7502349-2 (Version None)
Quarter: 2011Q2

REPORT INFORMATION
  Report Type: 
  Country: None (occurrence: None)
  Receive Date: 20110525
  Receipt Date: 20110511
  Transmission Date: 20111010
  Serious: Yes (Other)
  Sender: FDA-Public Use
  Company Number: US-JNJFOC-20110207276

PATIENT
  Sex: Female
  Weight: 115.67 kg

DRUGS (20)
  1. AMLODIPINE [Concomitant]
     Indication: HYPERTENSION
     Route: 048
     Dates: start: 20080101
  2. LEXAPRO [Concomitant]
     Indication: DEPRESSION
     Route: 048
     Dates: start: 20100101
  3. ALPRAZOLAM [Concomitant]
     Indication: ANXIETY
     Route: 048
     Dates: start: 20030101
  4. AMBIEN CR [Concomitant]
     Indication: INSOMNIA
     Route: 048
     Dates: start: 20090101
  5. ZANTAC [Concomitant]
     Indication: GASTROOESOPHAGEAL REFLUX DISEASE
     Route: 048
     Dates: start: 20100101
  6. FLONASE [Concomitant]
     Indication: ASTHMA
     Dosage: ORAL INHALATION, 2 PUFFS TWICE DAILY
     Route: 055
     Dates: start: 20080101
  7. VITAMIN D [Concomitant]
     Indication: NUTRITIONAL SUPPORT
     Route: 048
     Dates: start: 20080101
  8. REMICADE [Suspect]
     Indication: RHEUMATOID ARTHRITIS
     Route: 042
     Dates: start: 20100901
  9. SINGULAIR [Concomitant]
     Indication: ASTHMA
     Route: 048
     Dates: start: 20080101
  10. OMEPRAZOLE [Concomitant]
     Indication: GASTROOESOPHAGEAL REFLUX DISEASE
     Route: 048
     Dates: start: 20110201
  11. BENICAR [Concomitant]
     Indication: HYPERTENSION
     Route: 048
     Dates: start: 20080101
  12. METANX [Concomitant]
     Indication: NUTRITIONAL SUPPORT
     Route: 048
     Dates: start: 20090101
  13. FLEXERIL [Concomitant]
     Indication: MUSCLE SPASMS
     Route: 048
     Dates: start: 20080101
  14. SYMBICORT [Concomitant]
     Indication: ASTHMA
     Dosage: ORAL INHALANT
     Route: 055
     Dates: start: 20080101
  15. PROAIR HFA [Concomitant]
     Indication: ASTHMA
     Dosage: ORAL INHALATION, 2 PUFFS EVERY 4-6 HOURS AS NEEDED.
     Route: 055
     Dates: start: 20080101
  16. SULFASALAZINE [Concomitant]
     Indication: RHEUMATOID ARTHRITIS
     Route: 048
     Dates: start: 20100101
  17. WELLBUTRIN [Concomitant]
     Indication: OBSESSIVE-COMPULSIVE DISORDER
     Route: 048
     Dates: start: 20060101
  18. WELLBUTRIN [Concomitant]
     Indication: DEPRESSION
     Route: 048
     Dates: start: 20060101
  19. LEXAPRO [Concomitant]
     Indication: OBSESSIVE-COMPULSIVE DISORDER
     Route: 048
     Dates: start: 20100101
  20. DICYCLOMINE [Concomitant]
     Indication: DIARRHOEA
     Route: 048
     Dates: start: 20090101

REACTIONS (1)
  - PAIN IN EXTREMITY [None]
